FAERS Safety Report 13693018 (Version 1)
Quarter: 2017Q2

REPORT INFORMATION
  Report Type: Spontaneous
  Country: FR (occurrence: FR)
  Receive Date: 20170627
  Receipt Date: 20170627
  Transmission Date: 20170830
  Serious: Yes (Life-Threatening, Hospitalization, Other)
  Sender: FDA-Public Use
  Company Number: FR-SUN PHARMACEUTICAL INDUSTRIES LTD-2017RR-143417

PATIENT
  Age: 24 Year
  Sex: Male

DRUGS (1)
  1. TRAMADOL. [Suspect]
     Active Substance: TRAMADOL
     Indication: PRODUCT USED FOR UNKNOWN INDICATION
     Dosage: 100 MG, EXTENDED-RELEASE
     Route: 048

REACTIONS (5)
  - Intentional overdose [Unknown]
  - Miosis [Unknown]
  - Respiratory depression [Unknown]
  - Seizure [Recovered/Resolved]
  - Consciousness fluctuating [Unknown]
